FAERS Safety Report 8885897 (Version 1)
Quarter: 2012Q4

REPORT INFORMATION
  Report Type: 
  Country: US (occurrence: US)
  Receive Date: 20121101
  Receipt Date: 20121101
  Transmission Date: 20130627
  Serious: No
  Sender: FDA-Public Use
  Company Number: US-ASTRAZENECA-2012SE78711

PATIENT
  Age: 56 Year
  Sex: Female

DRUGS (3)
  1. SYMBICORT PMDI [Suspect]
     Indication: ASTHMA
     Dosage: 160/4.5 TWO TIMES A DAY
     Route: 055
  2. XOLAIR [Concomitant]
  3. XOPENEX [Concomitant]

REACTIONS (3)
  - Asthma [Unknown]
  - Activities of daily living impaired [Unknown]
  - Sleep disorder [Unknown]
